FAERS Safety Report 5053699-3 (Version None)
Quarter: 2006Q3

REPORT INFORMATION
  Report Type: 
  Country: None (occurrence: None)
  Receive Date: 20060718
  Receipt Date: 20060327
  Transmission Date: 20061208
  Serious: Yes (Other)
  Sender: FDA-Public Use
  Company Number: US-ROCHE-442351

PATIENT
  Age: 50 Year
  Sex: Female

DRUGS (2)
  1. PEGASYS [Suspect]
     Route: 058
     Dates: start: 20051004
  2. COPEGUS [Suspect]
     Route: 048
     Dates: start: 20051004

REACTIONS (10)
  - ALOPECIA [None]
  - ASTHMA [None]
  - DRY SKIN [None]
  - FATIGUE [None]
  - HYPERSENSITIVITY [None]
  - MOOD SWINGS [None]
  - PARANOIA [None]
  - RHINITIS ALLERGIC [None]
  - WEIGHT INCREASED [None]
  - WHITE BLOOD CELL COUNT DECREASED [None]
